FAERS Safety Report 17684418 (Version 2)
Quarter: 2022Q1

REPORT INFORMATION
  Report Type: Other
  Country: CN (occurrence: None)
  Receive Date: 20200420
  Receipt Date: 20220310
  Transmission Date: 20220423
  Serious: Yes (Hospitalization)
  Sender: FDA-Public Use
  Company Number: CN-NEOPHARMA INC-000326

PATIENT
  Age: 76 Year
  Sex: Female

DRUGS (5)
  1. PIOGLITAZONE [Suspect]
     Active Substance: PIOGLITAZONE
     Indication: Diabetes mellitus management
     Dosage: 15 MG ONCE A DAY
  2. INSULIN LISPRO [Suspect]
     Active Substance: INSULIN LISPRO
     Indication: Diabetes mellitus management
  3. ACARBOSE [Suspect]
     Active Substance: ACARBOSE
     Indication: Diabetes mellitus management
     Dosage: 50 MG THREE TIMES A DAY
  4. OLMESARTAN [Concomitant]
     Active Substance: OLMESARTAN
     Indication: Hypertension
  5. ASPIRIN [Concomitant]
     Active Substance: ASPIRIN
     Indication: Cerebral infarction

REACTIONS (4)
  - Oedema [Recovered/Resolved]
  - Localised oedema [Recovered/Resolved]
  - Pleural effusion [Recovered/Resolved]
  - Weight increased [Recovered/Resolved]
